FAERS Safety Report 7153252-1 (Version None)
Quarter: 2010Q4

REPORT INFORMATION
  Report Type: 
  Country: None (occurrence: None)
  Receive Date: 20101213
  Receipt Date: 20101207
  Transmission Date: 20110411
  Serious: Yes (Death, Life-Threatening, Hospitalization, Disabling)
  Sender: FDA-Public Use
  Company Number: PH-ROCHE-740082

PATIENT
  Sex: Female
  Weight: 52 kg

DRUGS (3)
  1. TRASTUZUMAB [Suspect]
     Dosage: DOSAGE FORM VIALS, LAST DOSE PRIOR TO SAE : 26 OCT 2010, PERMANENTLY DISCONTINUED ON 16 NOV 2010
     Route: 042
     Dates: start: 20101026, end: 20101116
  2. DOCETAXEL [Suspect]
     Dosage: DOSAGE FORM VIALS, LAST DOSE PRIOR TO SAE 26 OCT 2010, PERMANENTLY DISCONTINUED ON 16 NOV 2010
     Route: 042
     Dates: start: 20101026, end: 20101116
  3. CIPROFLOXACIN [Concomitant]
     Dates: start: 20101026, end: 20101102

REACTIONS (4)
  - FEBRILE NEUTROPENIA [None]
  - GASTRIC ULCER HAEMORRHAGE [None]
  - HEPATIC FAILURE [None]
  - PNEUMONIA [None]
